FAERS Safety Report 5951921-X (Version None)
Quarter: 2008Q4

REPORT INFORMATION
  Report Type: 
  Country: None (occurrence: None)
  Receive Date: 20081113
  Receipt Date: 20081031
  Transmission Date: 20090506
  Serious: Yes (Hospitalization, Other)
  Sender: FDA-Public Use
  Company Number: US-ELI_LILLY_AND_COMPANY-US200810005952

PATIENT
  Sex: Male
  Weight: 90.703 kg

DRUGS (11)
  1. CYMBALTA [Suspect]
     Indication: NEUROPATHY PERIPHERAL
     Dosage: 60 MG, DAILY (1/D)
  2. CYMBALTA [Suspect]
     Dosage: 60 MG, DAILY (1/D)
  3. INTERFERON [Concomitant]
  4. LANTUS [Concomitant]
  5. LISINOPRIL [Concomitant]
  6. NOVOLOG [Concomitant]
  7. CELEXA [Concomitant]
  8. TRAMADOL HCL [Concomitant]
  9. WELCHOL [Concomitant]
  10. REMERON [Concomitant]
  11. LITHIUM [Concomitant]

REACTIONS (8)
  - BIPOLAR DISORDER [None]
  - DEPRESSION [None]
  - EMOTIONAL DISORDER [None]
  - HEPATIC CIRRHOSIS [None]
  - LOSS OF CONSCIOUSNESS [None]
  - PNEUMONIA [None]
  - SUICIDAL IDEATION [None]
  - SUICIDE ATTEMPT [None]
